FAERS Safety Report 7689397-7 (Version None)
Quarter: 2011Q3

REPORT INFORMATION
  Report Type: 
  Country: None (occurrence: None)
  Receive Date: 20110817
  Receipt Date: 20110802
  Transmission Date: 20111222
  Serious: Yes (Hospitalization, Other)
  Sender: FDA-Public Use
  Company Number: PHHO2011US13146

PATIENT
  Sex: Female

DRUGS (22)
  1. VOLTAREN [Suspect]
  2. RANEXA [Suspect]
     Dosage: 1000 MG, UNK
     Dates: start: 20110202, end: 20110217
  3. HYDRALAZINE HCL [Concomitant]
     Dosage: UNK
     Dates: start: 20110202, end: 20110202
  4. LANTUS [Suspect]
     Dosage: UNK
     Dates: start: 20110202, end: 20110203
  5. INSULIN LISPRO [Suspect]
     Indication: TYPE 2 DIABETES MELLITUS
     Dosage: 1 DF, UNK
     Dates: start: 20110202, end: 20110217
  6. HUMALOG [Concomitant]
     Dosage: UNK
     Dates: start: 20110215, end: 20110217
  7. SODIUM CHLORIDE [Concomitant]
     Dosage: UNK
     Dates: start: 20110202, end: 20110204
  8. ACE INHIBITORS [Concomitant]
  9. LANTUS [Suspect]
     Dosage: 200 IU, UNK
     Dates: start: 20110204, end: 20110215
  10. RANOLAZINE [Suspect]
  11. LASIX [Concomitant]
     Dosage: UNK
     Dates: start: 20110202, end: 20110204
  12. LANTUS [Suspect]
     Indication: TYPE 2 DIABETES MELLITUS
     Dosage: 180 IU, UNK
     Dates: start: 20090601
  13. ACTOS [Suspect]
     Indication: TYPE 2 DIABETES MELLITUS
     Dosage: UNK
     Dates: start: 20101215, end: 20110211
  14. PLACEBO [Suspect]
     Dosage: UNK
     Dates: start: 20101019
  15. NITRATES [Concomitant]
  16. SAXAGLIPTIN [Suspect]
     Indication: TYPE 2 DIABETES MELLITUS
     Dosage: UNK
     Dates: start: 20101019
  17. NOVOLOG [Suspect]
     Indication: TYPE 2 DIABETES MELLITUS
     Dosage: 30 IU, UNK
     Dates: start: 20090518
  18. NITROGLYCERIN [Concomitant]
     Dosage: UNK
     Dates: start: 20110202, end: 20110215
  19. MORPHINE [Concomitant]
     Dosage: UNK
     Dates: start: 20110202, end: 20110203
  20. LANTUS [Suspect]
     Dosage: 200 IU, UNK
     Dates: start: 20110218, end: 20110321
  21. ASPIRIN [Concomitant]
  22. BETA BLOCKING AGENTS [Concomitant]

REACTIONS (9)
  - NON-CARDIAC CHEST PAIN [None]
  - CARDIAC FAILURE CONGESTIVE [None]
  - ABDOMINAL PAIN [None]
  - DEPRESSION [None]
  - REFLUX GASTRITIS [None]
  - SUICIDAL IDEATION [None]
  - IRRITABLE BOWEL SYNDROME [None]
  - RENAL FAILURE ACUTE [None]
  - ASTHMA [None]
